FAERS Safety Report 10433297 (Version 2)
Quarter: 2014Q4

REPORT INFORMATION
  Report Type: Spontaneous
  Country: US (occurrence: US)
  Receive Date: 20140905
  Receipt Date: 20141013
  Transmission Date: 20150528
  Serious: No
  Sender: FDA-Public Use
  Company Number: US-PFIZER INC-2014245945

PATIENT
  Age: 10 Year
  Sex: Male

DRUGS (2)
  1. GENOTROPIN MQ [Suspect]
     Active Substance: SOMATROPIN
     Indication: DWARFISM
     Dosage: 1.2 MG, 1X/DAY
     Route: 058
     Dates: start: 20140326
  2. CHILDREN^S CLARITIN [Concomitant]
     Dosage: 5 MG, UNK

REACTIONS (2)
  - Injection site haemorrhage [Unknown]
  - Injection site pain [Unknown]
